FAERS Safety Report 9882094 (Version 1)
Quarter: 2014Q1

REPORT INFORMATION
  Report Type: Spontaneous
  Country: NL (occurrence: NL)
  Receive Date: 20140207
  Receipt Date: 20140207
  Transmission Date: 20141002
  Serious: Yes (Hospitalization)
  Sender: FDA-Public Use
  Company Number: PHHY2014NL013769

PATIENT
  Sex: Female

DRUGS (4)
  1. CICLOSPORIN [Suspect]
     Indication: IMMUNOSUPPRESSION
     Dosage: 320 MG, DAY
  2. CICLOSPORIN [Suspect]
     Dosage: 200 MG, DAY
  3. PREDNISOLONE [Suspect]
     Indication: IMMUNOSUPPRESSION
     Dosage: 10 MG, PER DAY
  4. AZATHIOPRINE [Suspect]
     Indication: IMMUNOSUPPRESSION
     Dosage: 125 MG, PER DAY

REACTIONS (4)
  - Abdominal tenderness [Unknown]
  - Blood creatinine increased [Unknown]
  - Blood pressure diastolic increased [Unknown]
  - Maternal exposure before pregnancy [Unknown]
